FAERS Safety Report 4307642-2 (Version None)
Quarter: 2004Q1

REPORT INFORMATION
  Report Type: 
  Country: None (occurrence: None)
  Receive Date: 20040225
  Receipt Date: 20030828
  Transmission Date: 20041129
  Serious: Yes (Hospitalization)
  Sender: FDA-Public Use
  Company Number: WAES 0309USA00029

PATIENT
  Age: 76 Year
  Sex: Male

DRUGS (4)
  1. ZOCOR [Suspect]
     Indication: METABOLIC SYNDROME
     Dosage: 80 MG/DAILY/PO
     Route: 048
     Dates: start: 20020801, end: 20030823
  2. NIASPAN [Concomitant]
  3. PRINIVIL [Concomitant]
  4. METFORMIN HCL [Concomitant]

REACTIONS (1)
  - RHABDOMYOLYSIS [None]
